FAERS Safety Report 5243620-7 (Version None)
Quarter: 2007Q1

REPORT INFORMATION
  Report Type: 
  Country: None (occurrence: None)
  Receive Date: 20070220
  Receipt Date: 20070220
  Transmission Date: 20070707
  Serious: Yes (Life-Threatening)
  Sender: FDA-Public Use
  Company Number: None

PATIENT
  Age: 80 Year
  Sex: Female

DRUGS (2)
  1. TYGACIL [Suspect]
     Indication: SURGERY
     Dosage: 100MG  ONCE  IV
     Route: 042
     Dates: start: 20061010, end: 20061010
  2. TYGACIL [Suspect]
     Indication: SURGERY
     Dosage: 50MG  Q12H  IV
     Route: 042
     Dates: start: 20061011, end: 20061023

REACTIONS (5)
  - BLOOD CREATININE ABNORMAL [None]
  - HYPERKALAEMIA [None]
  - HYPONATRAEMIA [None]
  - LIVER FUNCTION TEST ABNORMAL [None]
  - OEDEMA [None]
